FAERS Safety Report 7797666-5 (Version None)
Quarter: 2011Q4

REPORT INFORMATION
  Report Type: 
  Country: None (occurrence: None)
  Receive Date: 20111005
  Receipt Date: 20110927
  Transmission Date: 20120403
  Serious: Yes (Disabling, Other)
  Sender: FDA-Public Use
  Company Number: PHBS2006JP08595

PATIENT
  Age: 5 Month
  Sex: Male
  Weight: 7 kg

DRUGS (3)
  1. ZADITEN [Suspect]
     Indication: DERMATITIS ATOPIC
     Dosage: 1.5 MG/DAY
     Route: 048
     Dates: start: 20060601, end: 20060605
  2. ZADITEN [Suspect]
     Indication: PRURITUS
  3. MIYA-BM [Suspect]
     Route: 048

REACTIONS (13)
  - TOXIC ENCEPHALOPATHY [None]
  - OVERDOSE [None]
  - SPEECH DISORDER [None]
  - AREFLEXIA [None]
  - GROWTH RETARDATION [None]
  - DIARRHOEA [None]
  - AGITATION [None]
  - MENTAL RETARDATION [None]
  - EPILEPSY [None]
  - CONVULSION [None]
  - DRUG DISPENSING ERROR [None]
  - SOMNOLENCE [None]
  - PYREXIA [None]
